FAERS Safety Report 5765505-X (Version None)
Quarter: 2008Q2

REPORT INFORMATION
  Report Type: 
  Country: None (occurrence: None)
  Receive Date: 20080611
  Receipt Date: 20080610
  Transmission Date: 20081010
  Serious: Yes (Other)
  Sender: FDA-Public Use
  Company Number: D0057639A

PATIENT
  Age: 81 Year
  Sex: Female

DRUGS (1)
  1. REQUIP [Suspect]
     Dosage: 2TAB PER DAY
     Route: 048

REACTIONS (1)
  - SOPOR [None]
